FAERS Safety Report 9463201 (Version 1)
Quarter: 2013Q3

REPORT INFORMATION
  Report Type: Spontaneous
  Country: TN (occurrence: TN)
  Receive Date: 20130818
  Receipt Date: 20130818
  Transmission Date: 20140515
  Serious: Yes (Other)
  Sender: FDA-Public Use
  Company Number: PHHY2013TN086306

PATIENT
  Age: 28 Year
  Sex: Male

DRUGS (2)
  1. FLUCONAZOLE [Suspect]
     Indication: TINEA VERSICOLOUR
     Dosage: (UNKNOWN DOSE)
  2. FLUCONAZOLE [Suspect]
     Dosage: 150 MG, UNK
     Route: 048

REACTIONS (7)
  - Epidermal necrosis [Unknown]
  - Drug eruption [Unknown]
  - Skin hyperpigmentation [Not Recovered/Not Resolved]
  - Local swelling [Unknown]
  - Genital erythema [Recovering/Resolving]
  - Erythema [Recovering/Resolving]
  - Macule [Unknown]
